FAERS Safety Report 10602071 (Version 1)
Quarter: 2014Q4

REPORT INFORMATION
  Report Type: Spontaneous
  Country: US (occurrence: US)
  Receive Date: 20141124
  Receipt Date: 20141124
  Transmission Date: 20150529
  Serious: No
  Sender: FDA-Public Use
  Company Number: US-009507513-1411USA009287

PATIENT
  Sex: Female

DRUGS (1)
  1. DR. SCHOLLS CORN/CALLUS REMOVER [Suspect]
     Active Substance: SALICYLIC ACID
     Indication: HYPERKERATOSIS
     Dosage: UNK, UNKNOWN
     Route: 061

REACTIONS (2)
  - Wrong technique in drug usage process [Unknown]
  - Product quality issue [Unknown]
